FAERS Safety Report 8363157-6 (Version None)
Quarter: 2012Q2

REPORT INFORMATION
  Report Type: 
  Country: None (occurrence: None)
  Receive Date: 20120516
  Receipt Date: 20111108
  Transmission Date: 20120825
  Serious: Yes (Hospitalization)
  Sender: FDA-Public Use
  Company Number: US-ALEXION PHARMACEUTICALS INC.-A201101544

PATIENT
  Sex: Male

DRUGS (3)
  1. PLAVIX [Concomitant]
     Dosage: UNK
  2. EXJADE [Concomitant]
     Indication: ANTIPLATELET THERAPY
     Dosage: UNK
  3. SOLIRIS [Suspect]
     Indication: PAROXYSMAL NOCTURNAL HAEMOGLOBINURIA
     Dosage: 900 MG, UNK
     Route: 042

REACTIONS (2)
  - ANAEMIA [None]
  - VIRAL INFECTION [None]
